FAERS Safety Report 12890371 (Version 2)
Quarter: 2016Q4

REPORT INFORMATION
  Report Type: Report from Study
  Country: US (occurrence: US)
  Receive Date: 20161027
  Receipt Date: 20161104
  Transmission Date: 20170207
  Serious: Yes (Death, Hospitalization)
  Sender: FDA-Public Use
  Company Number: US-ACTELION-A-US2016-144365

PATIENT
  Age: 68 Year
  Sex: Male

DRUGS (2)
  1. OPSUMIT [Suspect]
     Active Substance: MACITENTAN
     Indication: PULMONARY ARTERIAL HYPERTENSION
     Dosage: 10 MG, QD
     Route: 048
     Dates: start: 20140929, end: 20161011
  2. TYVASO [Concomitant]
     Active Substance: TREPROSTINIL

REACTIONS (2)
  - Death [Fatal]
  - Hip arthroplasty [Unknown]

NARRATIVE: CASE EVENT DATE: 20161005
